FAERS Safety Report 15467866 (Version 1)
Quarter: 2018Q4

REPORT INFORMATION
  Report Type: Spontaneous
  Country: FI (occurrence: FI)
  Receive Date: 20181005
  Receipt Date: 20181005
  Transmission Date: 20190204
  Serious: Yes (Death)
  Sender: FDA-Public Use
  Company Number: FI-ROCHE-2195008

PATIENT
  Age: 71 Year
  Sex: Female

DRUGS (12)
  1. BISOPROLOL ACTAVIS [Concomitant]
     Active Substance: BISOPROLOL
     Route: 065
  2. SOMAC [Concomitant]
     Active Substance: PANTOPRAZOLE SODIUM
     Route: 065
  3. PANADOL FORTE [Concomitant]
     Route: 065
  4. KALEORID [Concomitant]
     Active Substance: POTASSIUM CHLORIDE
     Route: 065
  5. MABTHERA [Suspect]
     Active Substance: RITUXIMAB
     Indication: RHEUMATOID ARTHRITIS
     Dosage: 500,MG,X1
     Route: 042
     Dates: start: 20180612
  6. PREDNISOLON [Concomitant]
     Active Substance: PREDNISOLONE
     Route: 065
  7. MYOCRISIN [Concomitant]
     Route: 030
  8. FURESIS [Concomitant]
     Active Substance: FUROSEMIDE
     Route: 065
  9. OXIKLORIN [Concomitant]
     Active Substance: HYDROXYCHLOROQUINE SULFATE
     Route: 048
  10. ZANIDIP [Concomitant]
     Active Substance: LERCANIDIPINE HYDROCHLORIDE
     Route: 065
  11. ZOPINOX [Concomitant]
     Active Substance: ZOPICLONE
     Route: 065
  12. SIRDALUD [Concomitant]
     Active Substance: TIZANIDINE
     Route: 065

REACTIONS (1)
  - Death [Fatal]

NARRATIVE: CASE EVENT DATE: 20180613
